FAERS Safety Report 7447758-5 (Version None)
Quarter: 2011Q2

REPORT INFORMATION
  Report Type: 
  Country: None (occurrence: None)
  Receive Date: 20110429
  Receipt Date: 20100819
  Transmission Date: 20111010
  Serious: No
  Sender: FDA-Public Use
  Company Number: US-ASTRAZENECA-2010SE39145

PATIENT
  Age: 44 Year
  Sex: Female

DRUGS (2)
  1. PRILOSEC OTC [Suspect]
     Route: 048
  2. NEXIUM [Suspect]
     Indication: GASTROOESOPHAGEAL REFLUX DISEASE
     Route: 048
     Dates: start: 20020101

REACTIONS (5)
  - DRUG DOSE OMISSION [None]
  - THROAT IRRITATION [None]
  - DYSPNOEA [None]
  - REGURGITATION [None]
  - DRUG INEFFECTIVE [None]
